FAERS Safety Report 12370175 (Version 1)
Quarter: 2016Q2

REPORT INFORMATION
  Report Type: Spontaneous
  Country: US (occurrence: None)
  Receive Date: 20160513
  Receipt Date: 20160513
  Transmission Date: 20160815
  Serious: Yes (Death, Life-Threatening, Hospitalization)
  Sender: FDA-Public Use
  Company Number: None

PATIENT
  Age: 67 Year
  Sex: Male
  Weight: 106.4 kg

DRUGS (2)
  1. ENOXAPARIN 120MG AMPHASTAR [Suspect]
     Active Substance: ENOXAPARIN
     Route: 058
     Dates: start: 20160329, end: 20160404
  2. ENOXAPARIN 100MG AMPHASTAR [Suspect]
     Active Substance: ENOXAPARIN
     Indication: ATRIAL FIBRILLATION
     Route: 058
     Dates: start: 20160328, end: 20160328

REACTIONS (2)
  - Retroperitoneal haemorrhage [None]
  - Multiple organ dysfunction syndrome [None]

NARRATIVE: CASE EVENT DATE: 20160404
